FAERS Safety Report 22634012 (Version 1)
Quarter: 2023Q2

REPORT INFORMATION
  Report Type: Spontaneous
  Country: US (occurrence: US)
  Receive Date: 20230623
  Receipt Date: 20230623
  Transmission Date: 20230722
  Serious: Yes (Death, Other)
  Sender: FDA-Public Use
  Company Number: US-drreddys-LIT/USA/23/0168764

PATIENT
  Age: 75 Year
  Sex: Male

DRUGS (3)
  1. PEMETREXED DISODIUM [Suspect]
     Active Substance: PEMETREXED DISODIUM
     Indication: Adenocarcinoma
  2. CISPLATIN [Suspect]
     Active Substance: CISPLATIN
     Indication: Adenocarcinoma
  3. SOTORASIB [Suspect]
     Active Substance: SOTORASIB
     Indication: Adenocarcinoma

REACTIONS (3)
  - Death [Fatal]
  - Adenocarcinoma [Unknown]
  - Drug ineffective [Unknown]
